FAERS Safety Report 13545468 (Version 1)
Quarter: 2017Q2

REPORT INFORMATION
  Report Type: Spontaneous
  Country: US (occurrence: US)
  Receive Date: 20170515
  Receipt Date: 20170515
  Transmission Date: 20170830
  Serious: No
  Sender: FDA-Public Use
  Company Number: US-PFIZER INC-2017205469

PATIENT
  Sex: Female

DRUGS (1)
  1. EUCRISA [Suspect]
     Active Substance: CRISABOROLE
     Indication: DERMATITIS ATOPIC
     Dosage: 2X/DAY
     Route: 061
     Dates: start: 2017, end: 2017

REACTIONS (1)
  - Application site erythema [Unknown]

NARRATIVE: CASE EVENT DATE: 2017
